FAERS Safety Report 4804716-4 (Version None)
Quarter: 2005Q4

REPORT INFORMATION
  Report Type: 
  Country: None (occurrence: None)
  Receive Date: 20051020
  Receipt Date: 20050128
  Transmission Date: 20060501
  Serious: Yes (Hospitalization)
  Sender: FDA-Public Use
  Company Number: 200510226EU

PATIENT
  Age: 87 Year
  Sex: Male

DRUGS (10)
  1. TAXOTERE [Suspect]
     Indication: PROSTATE CANCER
     Route: 042
     Dates: start: 20041116, end: 20041116
  2. FENTANYL [Concomitant]
     Indication: PAIN
     Route: 061
     Dates: start: 20041108
  3. PINDOLOL [Concomitant]
     Indication: HYPERTENSION
     Route: 048
     Dates: start: 19960101
  4. AMLODIPINE [Concomitant]
     Indication: HYPERTENSION
     Route: 048
     Dates: start: 19960101
  5. ENALAPRIL [Concomitant]
     Indication: HYPERTENSION
     Route: 048
     Dates: start: 19960101
  6. PREDNISONE TAB [Concomitant]
     Indication: PROSTATE CANCER
     Route: 048
  7. SEVREDOL [Concomitant]
     Dates: start: 20041108
  8. MAGNESIUM OXIDE [Concomitant]
     Dates: start: 20041108
  9. CARBASALAAT CALCIUM [Concomitant]
     Dates: start: 19960101
  10. SIMVASTATIN [Concomitant]
     Dates: start: 20030101

REACTIONS (8)
  - BLOOD ALKALINE PHOSPHATASE INCREASED [None]
  - BLOOD GLUCOSE INCREASED [None]
  - BLOOD LACTATE DEHYDROGENASE INCREASED [None]
  - BLOOD PRESSURE DECREASED [None]
  - CEREBROVASCULAR ACCIDENT [None]
  - CONFUSIONAL STATE [None]
  - DYSPHASIA [None]
  - HAEMOGLOBIN DECREASED [None]
